FAERS Safety Report 14309482 (Version 1)
Quarter: 2017Q4

REPORT INFORMATION
  Report Type: Spontaneous
  Country: BE (occurrence: BE)
  Receive Date: 20171220
  Receipt Date: 20171220
  Transmission Date: 20180321
  Serious: Yes (Hospitalization)
  Sender: FDA-Public Use
  Company Number: BE-SA-2017SA245229

PATIENT
  Age: 40 Year
  Sex: Female

DRUGS (1)
  1. LEMTRADA [Suspect]
     Active Substance: ALEMTUZUMAB
     Indication: MULTIPLE SCLEROSIS
     Route: 041
     Dates: start: 201601

REACTIONS (7)
  - Kidney rupture [Unknown]
  - Decreased appetite [Unknown]
  - Pyrexia [Unknown]
  - Calculus urinary [Not Recovered/Not Resolved]
  - Anaemia [Recovered/Resolved]
  - Urinary incontinence [Unknown]
  - Nausea [Unknown]

NARRATIVE: CASE EVENT DATE: 20161025
